FAERS Safety Report 13521663 (Version 1)
Quarter: 2017Q2

REPORT INFORMATION
  Report Type: Spontaneous
  Country: US (occurrence: US)
  Receive Date: 20170508
  Receipt Date: 20170508
  Transmission Date: 20170830
  Serious: Yes (Other)
  Sender: FDA-Public Use
  Company Number: US-ASTELLAS-2017US017398

PATIENT
  Age: 57 Year
  Sex: Male

DRUGS (2)
  1. AFATINIB [Concomitant]
     Active Substance: AFATINIB
     Indication: PRODUCT USED FOR UNKNOWN INDICATION
     Dosage: UNK UNK, UNKNOWN FREQ.
     Route: 065
  2. TARCEVA [Suspect]
     Active Substance: ERLOTINIB HYDROCHLORIDE
     Indication: LUNG CANCER METASTATIC
     Route: 048
     Dates: start: 201410, end: 201411

REACTIONS (8)
  - Abdominal distension [Recovered/Resolved]
  - Hepatic failure [Recovered/Resolved]
  - Insomnia [Recovered/Resolved]
  - Neuropathy peripheral [Recovered/Resolved]
  - Acne [Recovered/Resolved]
  - Neoplasm recurrence [Unknown]
  - Diarrhoea [Recovered/Resolved]
  - Night sweats [Recovered/Resolved]

NARRATIVE: CASE EVENT DATE: 20141021
